FAERS Safety Report 25184516 (Version 1)
Quarter: 2025Q2

REPORT INFORMATION
  Report Type: Spontaneous
  Country: US (occurrence: None)
  Receive Date: 20250409
  Receipt Date: 20250409
  Transmission Date: 20250717
  Serious: Yes (Life-Threatening)
  Sender: FDA-CTU
  Company Number: None

PATIENT
  Age: 62 Year
  Sex: Male
  Weight: 80.6 kg

DRUGS (1)
  1. YESCARTA [Suspect]
     Active Substance: AXICABTAGENE CILOLEUCEL
     Indication: Follicular lymphoma
     Route: 041
     Dates: start: 20241016, end: 20241016

REACTIONS (7)
  - Immune effector cell-associated neurotoxicity syndrome [None]
  - Unresponsive to stimuli [None]
  - Cerebral atrophy [None]
  - Electroencephalogram abnormal [None]
  - Encephalopathy [None]
  - Nervous system disorder [None]
  - Cytokine release syndrome [None]

NARRATIVE: CASE EVENT DATE: 20241022
